FAERS Safety Report 9082255 (Version 1)
Quarter: 2013Q1

REPORT INFORMATION
  Report Type: Report from Study
  Country: US (occurrence: US)
  Receive Date: 20130131
  Receipt Date: 20130131
  Transmission Date: 20140127
  Serious: No
  Sender: FDA-Public Use
  Company Number: US-ABBOTT-12P-163-0989556-00

PATIENT
  Age: 46 Year
  Sex: Female

DRUGS (5)
  1. HUMIRA [Suspect]
     Indication: CROHN^S DISEASE
     Dates: start: 20120926
  2. NEURONTIN [Concomitant]
     Indication: NEURALGIA
     Dosage: 1 TABLET THREE TIMES DAILY
  3. FLEXERIL [Concomitant]
     Indication: MYALGIA
     Dosage: 1 TAB EVERY 6 HOURS AS NEEDED
  4. PRILOSEC [Concomitant]
     Indication: GASTROOESOPHAGEAL REFLUX DISEASE
     Dosage: 1 TAB TWICE DAILY
  5. MULTIVITAMIN [Concomitant]
     Indication: PRODUCT USED FOR UNKNOWN INDICATION
     Dosage: 1 TAB DAILY AS NEEDED

REACTIONS (2)
  - Contusion [Not Recovered/Not Resolved]
  - Drug ineffective [Unknown]
